FAERS Safety Report 24121563 (Version 1)
Quarter: 2024Q3

REPORT INFORMATION
  Report Type: Spontaneous
  Country: US (occurrence: None)
  Receive Date: 20240720
  Receipt Date: 20240720
  Transmission Date: 20241017
  Serious: No
  Sender: Public
  Company Number: None

PATIENT
  Age: 6 Month
  Sex: Female
  Weight: 2.79 kg

DRUGS (1)
  1. ZOLGENSMA [Suspect]
     Active Substance: ONASEMNOGENE ABEPARVOVEC-XIOI
     Indication: Spinal muscular atrophy
     Dates: start: 20240711

REACTIONS (7)
  - Product administration error [None]
  - Transaminases [None]
  - Prothrombin time prolonged [None]
  - International normalised ratio increased [None]
  - Thrombocytopenia [None]
  - White blood cell count decreased [None]
  - Neutrophil count increased [None]

NARRATIVE: CASE EVENT DATE: 20240718
